FAERS Safety Report 17868019 (Version 1)
Quarter: 2020Q2

REPORT INFORMATION
  Report Type: Report from Study
  Country: None (occurrence: DE)
  Receive Date: 20200606
  Receipt Date: 20200606
  Transmission Date: 20200714
  Serious: Yes (Other)
  Sender: FDA-Public Use
  Company Number: DE-ABBVIE-20K-062-3428262-00

PATIENT
  Age: 64 Year
  Sex: Male

DRUGS (3)
  1. METOPROLOL. [Concomitant]
     Active Substance: METOPROLOL
     Indication: PRODUCT USED FOR UNKNOWN INDICATION
  2. QUETIAPIN [Concomitant]
     Active Substance: QUETIAPINE
     Indication: PRODUCT USED FOR UNKNOWN INDICATION
  3. DUODOPA [Suspect]
     Active Substance: CARBIDOPA\LEVODOPA
     Indication: PARKINSON^S DISEASE
     Dosage: MD 10 ML; CRD 5.9 ML/ H; CRN 5.9 ML/ H; ED 3 ML
     Route: 050
     Dates: start: 20191204

REACTIONS (3)
  - Cataract [Not Recovered/Not Resolved]
  - Akinesia [Not Recovered/Not Resolved]
  - Dry mouth [Not Recovered/Not Resolved]

NARRATIVE: CASE EVENT DATE: 201912
